FAERS Safety Report 8805082 (Version 1)
Quarter: 2012Q4

REPORT INFORMATION
  Report Type: 
  Country: US (occurrence: US)
  Receive Date: 20120924
  Receipt Date: 20120924
  Transmission Date: 20130627
  Serious: No
  Sender: FDA-Public Use
  Company Number: US-ALLERGAN-1211920US

PATIENT
  Age: 59 Year
  Sex: Male

DRUGS (2)
  1. LUMIGAN EYE GTTS [Suspect]
     Indication: INCREASED INTRAOCULAR PRESSURE
     Dosage: 1 Gtt, UNK
     Route: 047
     Dates: start: 20120824
  2. ERYTHROMYCIN [Concomitant]
     Indication: CORNEAL DISORDER NOS
     Route: 047

REACTIONS (4)
  - Miosis [Unknown]
  - Iris disorder [Unknown]
  - Pupillary light reflex tests abnormal [Unknown]
  - Incorrect dose administered [Unknown]
